FAERS Safety Report 4358520-4 (Version None)
Quarter: 2004Q2

REPORT INFORMATION
  Report Type: 
  Country: None (occurrence: None)
  Receive Date: 20040514
  Receipt Date: 20040507
  Transmission Date: 20050107
  Serious: Yes (Other)
  Sender: FDA-Public Use
  Company Number: GB-GLAXOSMITHKLINE-B0332247A

PATIENT
  Sex: Female

DRUGS (3)
  1. SEROXAT [Suspect]
     Indication: DEPRESSION
     Dosage: 20MG PER DAY
     Route: 048
     Dates: start: 20000414, end: 20031201
  2. DIHYDROCODEINE [Concomitant]
     Route: 065
  3. CELECOXIB [Concomitant]
     Route: 065

REACTIONS (1)
  - INTENTIONAL SELF-INJURY [None]
